FAERS Safety Report 15699453 (Version 1)
Quarter: 2018Q4

REPORT INFORMATION
  Report Type: Spontaneous
  Country: US (occurrence: US)
  Receive Date: 20181207
  Receipt Date: 20181207
  Transmission Date: 20190205
  Serious: Yes (Other)
  Sender: FDA-Public Use
  Company Number: PHHY2018US170631

PATIENT
  Age: 57 Year
  Sex: Female

DRUGS (2)
  1. PAZOPANIB [Suspect]
     Active Substance: PAZOPANIB
     Dosage: 400 MG, QD
     Route: 065
  2. PAZOPANIB [Suspect]
     Active Substance: PAZOPANIB
     Indication: METASTATIC RENAL CELL CARCINOMA
     Dosage: 800 MG, QD
     Route: 065
     Dates: start: 201612, end: 201706

REACTIONS (6)
  - Transaminases increased [Unknown]
  - Hypertension [Unknown]
  - Metastatic renal cell carcinoma [Unknown]
  - Nausea [Unknown]
  - Malignant neoplasm progression [Unknown]
  - Tracheal stenosis [Unknown]
